FAERS Safety Report 25388659 (Version 1)
Quarter: 2025Q2

REPORT INFORMATION
  Report Type: Spontaneous
  Country: TR (occurrence: TR)
  Receive Date: 20250603
  Receipt Date: 20250603
  Transmission Date: 20250717
  Serious: Yes (Hospitalization, Other)
  Sender: LEGACY PHARMACEUTICAL PACKAGING
  Company Number: TR-LEGACY PHARMA INC. SEZC-LGP202505-000171

PATIENT
  Age: 20 Year
  Sex: Female

DRUGS (10)
  1. ATROPINE SULFATE\DIFENOXIN HYDROCHLORIDE [Suspect]
     Active Substance: ATROPINE SULFATE\DIFENOXIN HYDROCHLORIDE
     Indication: Chemical poisoning
     Route: 042
  2. ATROPINE SULFATE\DIFENOXIN HYDROCHLORIDE [Suspect]
     Active Substance: ATROPINE SULFATE\DIFENOXIN HYDROCHLORIDE
     Dosage: 1 MILLIGRAM, QH, INFUSION
  3. ATROPINE SULFATE\DIFENOXIN HYDROCHLORIDE [Suspect]
     Active Substance: ATROPINE SULFATE\DIFENOXIN HYDROCHLORIDE
     Route: 065
  4. PROPOFOL [Concomitant]
     Active Substance: PROPOFOL
     Indication: Chemical poisoning
     Route: 042
  5. ATRACURIUM [Concomitant]
     Active Substance: ATRACURIUM
     Indication: Chemical poisoning
     Route: 042
  6. Contrathion [Concomitant]
     Indication: Chemical poisoning
  7. Contrathion [Concomitant]
     Dosage: 100 ML 0.9% STERILE SALINE SOLUTION
  8. Contrathion [Concomitant]
  9. AMPICILLIN SODIUM\SULBACTAM SODIUM [Concomitant]
     Active Substance: AMPICILLIN SODIUM\SULBACTAM SODIUM
     Indication: Chemical poisoning
     Dosage: 1.5 MILLIGRAM, Q6H
     Route: 042
  10. ENOXAPARIN SODIUM [Concomitant]
     Active Substance: ENOXAPARIN SODIUM
     Indication: Chemical poisoning
     Dosage: 4000 INTERNATIONAL UNIT, DAILY
     Route: 058

REACTIONS (3)
  - Delirium [Recovered/Resolved]
  - Hallucination [Recovered/Resolved]
  - Product use in unapproved indication [Unknown]
